FAERS Safety Report 7732921-6 (Version None)
Quarter: 2011Q3

REPORT INFORMATION
  Report Type: 
  Country: None (occurrence: None)
  Receive Date: 20110907
  Receipt Date: 20110902
  Transmission Date: 20111222
  Serious: Yes (Disabling)
  Sender: FDA-Public Use
  Company Number: GB-PFIZER INC-2011206733

PATIENT
  Age: 51 Year
  Sex: Male

DRUGS (2)
  1. VARENICLINE TARTRATE [Suspect]
     Indication: SMOKING CESSATION THERAPY
     Dosage: UNK
     Route: 048
     Dates: start: 20110812, end: 20110818
  2. CUPROFEN [Concomitant]
     Indication: PAIN
     Dosage: 400 MG, AS NEEDED
     Route: 048

REACTIONS (5)
  - NAUSEA [None]
  - DIZZINESS [None]
  - CONFUSIONAL STATE [None]
  - DELUSION [None]
  - FEELING ABNORMAL [None]
